FAERS Safety Report 9633558 (Version 1)
Quarter: 2013Q4

REPORT INFORMATION
  Report Type: Report from Study
  Country: CL (occurrence: CL)
  Receive Date: 20131021
  Receipt Date: 20131021
  Transmission Date: 20140711
  Serious: Yes (Hospitalization)
  Sender: FDA-Public Use
  Company Number: PHHY2013CL117940

PATIENT
  Age: 83 Year
  Sex: Female

DRUGS (1)
  1. TAREG D [Suspect]
     Dosage: 1 DF (160MG VALS/25MG HCTZ)

REACTIONS (2)
  - Blood sodium abnormal [Unknown]
  - Blood pressure increased [Unknown]
